FAERS Safety Report 6089024-9 (Version None)
Quarter: 2009Q1

REPORT INFORMATION
  Report Type: 
  Country: None (occurrence: None)
  Receive Date: 20090224
  Receipt Date: 20090220
  Transmission Date: 20090719
  Serious: Yes (Hospitalization)
  Sender: FDA-Public Use
  Company Number: A0757312A

PATIENT
  Age: 57 Year
  Sex: Female
  Weight: 90.9 kg

DRUGS (4)
  1. AVANDIA [Suspect]
     Indication: DIABETES MELLITUS
     Route: 048
     Dates: start: 20010605, end: 20070722
  2. AMBIEN [Concomitant]
  3. ASPIRIN [Concomitant]
  4. PLAVIX [Concomitant]

REACTIONS (5)
  - CEREBROVASCULAR ACCIDENT [None]
  - CHEST PAIN [None]
  - HYPERTENSION [None]
  - PERIPHERAL VASCULAR DISORDER [None]
  - TRANSIENT ISCHAEMIC ATTACK [None]
